FAERS Safety Report 6895710-0 (Version None)
Quarter: 2010Q3

REPORT INFORMATION
  Report Type: 
  Country: None (occurrence: None)
  Receive Date: 20100802
  Receipt Date: 20100723
  Transmission Date: 20110219
  Serious: Yes (Other)
  Sender: FDA-Public Use
  Company Number: US-SANOFI-AVENTIS-2010SA044262

PATIENT
  Age: 63 Year
  Sex: Female

DRUGS (2)
  1. LANTUS [Suspect]
     Indication: TYPE 2 DIABETES MELLITUS
     Dosage: DOSE:82 UNIT(S)
     Route: 058
  2. METFORMIN HCL [Concomitant]

REACTIONS (5)
  - BLOOD MAGNESIUM DECREASED [None]
  - BLOOD POTASSIUM DECREASED [None]
  - DIABETES MELLITUS INADEQUATE CONTROL [None]
  - INJECTION SITE MASS [None]
  - OVARIAN CANCER [None]
